FAERS Safety Report 19475817 (Version 1)
Quarter: 2021Q2

REPORT INFORMATION
  Report Type: Spontaneous
  Country: IT (occurrence: IT)
  Receive Date: 20210630
  Receipt Date: 20210630
  Transmission Date: 20210717
  Serious: Yes (Other)
  Sender: FDA-Public Use
  Company Number: IT-SUN PHARMACEUTICAL INDUSTRIES LTD-2021RR-302599

PATIENT
  Age: 72 Year
  Sex: Male

DRUGS (5)
  1. TEICOPLANIN [Suspect]
     Active Substance: TEICOPLANIN
     Indication: OSTEOMYELITIS
     Dosage: UNK
     Route: 065
  2. CIPROFLOXACIN. [Suspect]
     Active Substance: CIPROFLOXACIN
     Indication: POSTOPERATIVE THORACIC PROCEDURE COMPLICATION
     Dosage: UNK
     Route: 065
  3. COTRIMOXAZOLE [Suspect]
     Active Substance: SULFAMETHOXAZOLE\TRIMETHOPRIM
     Indication: POSTOPERATIVE THORACIC PROCEDURE COMPLICATION
     Dosage: UNK
     Route: 065
  4. LINEZOLIDE [Suspect]
     Active Substance: LINEZOLID
     Indication: STAPHYLOCOCCAL INFECTION
     Dosage: UNK
     Route: 065
     Dates: start: 201209
  5. VANCOMYCIN HYDROCHLORIDE. [Suspect]
     Active Substance: VANCOMYCIN HYDROCHLORIDE
     Indication: OSTEOMYELITIS
     Dosage: UNK
     Route: 065

REACTIONS (4)
  - Disease progression [Unknown]
  - Neutropenia [Unknown]
  - Renal impairment [Unknown]
  - Bone marrow disorder [Unknown]
